FAERS Safety Report 24018115 (Version 1)
Quarter: 2024Q2

REPORT INFORMATION
  Report Type: Spontaneous
  Country: SE (occurrence: SE)
  Receive Date: 20240627
  Receipt Date: 20240627
  Transmission Date: 20240715
  Serious: Yes (Hospitalization)
  Sender: FDA-Public Use
  Company Number: None

PATIENT

DRUGS (1)
  1. BRUKINSA [Suspect]
     Active Substance: ZANUBRUTINIB
     Indication: Chronic lymphocytic leukaemia
     Dosage: UNK
     Dates: start: 20240409, end: 20240517

REACTIONS (10)
  - Pneumonia [Recovering/Resolving]
  - Nasopharyngitis [Recovering/Resolving]
  - Red blood cell sedimentation rate increased [Recovered/Resolved]
  - Cardiac fibrillation [Recovering/Resolving]
  - Extrasystoles [Recovering/Resolving]
  - Dyspnoea [Recovering/Resolving]
  - Choking sensation [Recovered/Resolved]
  - Dyspnoea exertional [Recovering/Resolving]
  - Pruritus [Recovering/Resolving]
  - Fatigue [Recovering/Resolving]

NARRATIVE: CASE EVENT DATE: 20240409
